FAERS Safety Report 8023187-0 (Version None)
Quarter: 2012Q1

REPORT INFORMATION
  Report Type: 
  Country: None (occurrence: None)
  Receive Date: 20120104
  Receipt Date: 20040624
  Transmission Date: 20120608
  Serious: No
  Sender: FDA-Public Use
  Company Number: PHHY2004BR03773

PATIENT
  Sex: Female

DRUGS (1)
  1. ZELMAC [Suspect]

REACTIONS (1)
  - INTESTINAL OBSTRUCTION [None]
